FAERS Safety Report 18104705 (Version 1)
Quarter: 2020Q3

REPORT INFORMATION
  Report Type: Spontaneous
  Country: US (occurrence: US)
  Receive Date: 20200804
  Receipt Date: 20200804
  Transmission Date: 20201103
  Serious: No
  Sender: FDA-Public Use
  Company Number: US-BAUSCH-BL-2020-021376

PATIENT
  Age: 38 Year
  Sex: Female

DRUGS (3)
  1. TRETINOIN. [Suspect]
     Active Substance: TRETINOIN
     Indication: PRODUCT USE IN UNAPPROVED INDICATION
  2. TRETINOIN. [Suspect]
     Active Substance: TRETINOIN
     Indication: EPHELIDES
     Route: 061
     Dates: start: 20200717, end: 20200724
  3. TRETINOIN. [Suspect]
     Active Substance: TRETINOIN
     Indication: PIGMENTATION DISORDER

REACTIONS (5)
  - Skin exfoliation [Not Recovered/Not Resolved]
  - Product use in unapproved indication [Unknown]
  - Erythema [Not Recovered/Not Resolved]
  - Dry skin [Not Recovered/Not Resolved]
  - Burning sensation [Not Recovered/Not Resolved]

NARRATIVE: CASE EVENT DATE: 202007
